FAERS Safety Report 4811315-7 (Version None)
Quarter: 2005Q4

REPORT INFORMATION
  Report Type: 
  Country: None (occurrence: None)
  Receive Date: 20051026
  Receipt Date: 20051026
  Transmission Date: 20060501
  Serious: Yes (Other)
  Sender: FDA-Public Use
  Company Number: None

PATIENT
  Age: 54 Year
  Sex: Female
  Weight: 99.7913 kg

DRUGS (3)
  1. OFLOXACIN [Suspect]
     Indication: CATARACT
     Dosage: 1 DROP 4 PER DAY OPHTHALMIC
     Route: 047
     Dates: start: 20051004, end: 20051012
  2. OFLOXACIN [Suspect]
     Indication: POSTOPERATIVE CARE
     Dosage: 1 DROP 4 PER DAY OPHTHALMIC
     Route: 047
     Dates: start: 20051004, end: 20051012
  3. OFLOXACIN [Suspect]
     Indication: PREOPERATIVE CARE
     Dosage: 1 DROP 4 PER DAY OPHTHALMIC
     Route: 047
     Dates: start: 20051004, end: 20051012

REACTIONS (3)
  - DIZZINESS [None]
  - HEAD LAG [None]
  - STARING [None]
